FAERS Safety Report 5672389-7 (Version None)
Quarter: 2008Q1

REPORT INFORMATION
  Report Type: 
  Country: None (occurrence: None)
  Receive Date: 20080319
  Receipt Date: 20080312
  Transmission Date: 20080703
  Serious: Yes (Hospitalization)
  Sender: FDA-Public Use
  Company Number: PHNU2008DE01291

PATIENT
  Age: 65 Year
  Sex: Female

DRUGS (1)
  1. ACLASTA [Suspect]
     Dosage: UNK, ONCE/SINGLE
     Route: 042

REACTIONS (2)
  - CARDIAC DISCOMFORT [None]
  - INFLUENZA LIKE ILLNESS [None]
